FAERS Safety Report 18265552 (Version 2)
Quarter: 2020Q3

REPORT INFORMATION
  Report Type: Spontaneous
  Country: US (occurrence: US)
  Receive Date: 20200914
  Receipt Date: 20200917
  Transmission Date: 20201103
  Serious: Yes (Other)
  Sender: FDA-Public Use
  Company Number: US-LUNDBECK-DKLU3021107

PATIENT
  Age: 1 Year
  Sex: Male
  Weight: 9 kg

DRUGS (3)
  1. SABRIL [Suspect]
     Active Substance: VIGABATRIN
     Indication: INFANTILE SPASMS
     Route: 048
     Dates: start: 20200619
  2. SABRIL [Suspect]
     Active Substance: VIGABATRIN
     Indication: LENNOX-GASTAUT SYNDROME
     Route: 048
  3. SABRIL [Suspect]
     Active Substance: VIGABATRIN
     Route: 048

REACTIONS (2)
  - Product dose omission issue [Unknown]
  - Drug withdrawal convulsions [Unknown]

NARRATIVE: CASE EVENT DATE: 20200910
